FAERS Safety Report 10481044 (Version 1)
Quarter: 2014Q3

REPORT INFORMATION
  Report Type: Spontaneous
  Country: FR (occurrence: FR)
  Receive Date: 20140929
  Receipt Date: 20140929
  Transmission Date: 20150326
  Serious: Yes (Hospitalization)
  Sender: FDA-Public Use
  Company Number: FR-RECKITT BENCKISER PHARMACEUTICAL, INC-RB-71859-2014

PATIENT
  Age: 2 Year
  Sex: Female

DRUGS (2)
  1. SUBUTEX [Suspect]
     Active Substance: BUPRENORPHINE HYDROCHLORIDE
     Dosage: 3 OR 4 TABLETS, ONCE
     Route: 048
     Dates: start: 20140820, end: 20140820
  2. VALIUM [Suspect]
     Active Substance: DIAZEPAM
     Dosage: SEVERAL TABLETS, ONCE
     Route: 048
     Dates: start: 20140820, end: 20140820

REACTIONS (6)
  - Accidental exposure to product by child [Recovered/Resolved]
  - Somnolence [Recovered/Resolved]
  - Toxicity to various agents [Recovered/Resolved]
  - Miosis [Recovered/Resolved]
  - Abdominal pain [Recovered/Resolved]
  - Coma scale abnormal [None]

NARRATIVE: CASE EVENT DATE: 20140820
